FAERS Safety Report 9586411 (Version 2)
Quarter: 2013Q4

REPORT INFORMATION
  Report Type: Spontaneous
  Country: US (occurrence: None)
  Receive Date: 20131001
  Receipt Date: 20131125
  Transmission Date: 20140711
  Serious: Yes (Hospitalization)
  Sender: FDA-Public Use
  Company Number: 2013ZX000309

PATIENT
  Age: 59 Year
  Sex: Female

DRUGS (10)
  1. SUMAVEL DOSEPRO [Suspect]
     Indication: MIGRAINE
  2. LISINOPRIL (LISINOPRIL) [Concomitant]
  3. NEXIUM (ESOMEPRAZOLE MAGNESIUM) [Concomitant]
  4. OXCARBAZEPINE (OXCARBAZEPINE) [Concomitant]
  5. ESTRADIOL (ESTRADIOL) [Concomitant]
  6. ATENOLOL (ATENOLOL) [Concomitant]
  7. DICYCLOMINE (DICYCLOVERINE) [Concomitant]
  8. LORATIDINE [Concomitant]
  9. GLIPIZIDE (GLIPIZIDE) [Concomitant]
  10. METFORMIN (METFORMIN) [Concomitant]

REACTIONS (9)
  - Loss of consciousness [None]
  - Fall [None]
  - Blood sodium decreased [None]
  - Dizziness [None]
  - Diarrhoea [None]
  - Nausea [None]
  - Vomiting [None]
  - Drug effect incomplete [None]
  - Migraine [None]
